FAERS Safety Report 26125593 (Version 2)
Quarter: 2025Q4

REPORT INFORMATION
  Report Type: Spontaneous
  Country: JP (occurrence: JP)
  Receive Date: 20251205
  Receipt Date: 20251221
  Transmission Date: 20260117
  Serious: Yes (Other)
  Sender: IPSEN BIOPHARMACEUTICALS, INC.
  Company Number: JP-IPSEN Group, Research and Development-2025-29915

PATIENT
  Sex: Female

DRUGS (2)
  1. LANREOTIDE ACETATE [Suspect]
     Active Substance: LANREOTIDE ACETATE
     Indication: Acromegaly
     Dosage: DEEP SUBCUTANEOUS
     Route: 058
  2. SANDOSTATIN [Suspect]
     Active Substance: OCTREOTIDE ACETATE
     Indication: Product used for unknown indication
     Dosage: UNKNOWN

REACTIONS (1)
  - Laryngeal oedema [Unknown]
